FAERS Safety Report 15215636 (Version 1)
Quarter: 2018Q3

REPORT INFORMATION
  Report Type: Spontaneous
  Country: US (occurrence: US)
  Receive Date: 20180703
  Receipt Date: 20180703
  Transmission Date: 20181010
  Serious: Yes (Other)
  Sender: FDA-Public Use
  Company Number: None

PATIENT
  Age: 63 Year
  Sex: Female
  Weight: 57.15 kg

DRUGS (3)
  1. SENSODYNE TRUE WHITE [Suspect]
     Active Substance: POTASSIUM NITRATE\SODIUM FLUORIDE
     Indication: SENSITIVITY OF TEETH
     Dosage: ?          QUANTITY:1 1 INCH STRIP;OTHER ROUTE:TOOTHPASTE?
     Dates: start: 20180619, end: 20180627
  2. MULTI?VITAMIN [Concomitant]
     Active Substance: .ALPHA.-TOCOPHEROL ACETATE, DL-\ASCORBIC ACID\CYANOCOBALAMIN\FLUORIDE ION\FOLIC ACID\NIACIN\PYRIDOXINE\RIBOFLAVIN\THIAMINE\VITAMIN A\VITAMIN D
  3. AMLODIPINE BESYLATE. [Concomitant]
     Active Substance: AMLODIPINE BESYLATE

REACTIONS (8)
  - Dysphagia [None]
  - Pharyngeal oedema [None]
  - Pharyngeal hypoaesthesia [None]
  - Tongue polyp [None]
  - Oral discomfort [None]
  - Oropharyngeal pain [None]
  - Oral mucosal blistering [None]
  - Nerve injury [None]

NARRATIVE: CASE EVENT DATE: 20180623
